FAERS Safety Report 15505321 (Version 1)
Quarter: 2018Q4

REPORT INFORMATION
  Report Type: Spontaneous
  Country: US (occurrence: US)
  Receive Date: 20181016
  Receipt Date: 20181016
  Transmission Date: 20190205
  Serious: No
  Sender: FDA-Public Use
  Company Number: US-AMGEN-USASP2018141630

PATIENT

DRUGS (3)
  1. ENBREL [Suspect]
     Active Substance: ETANERCEPT
     Indication: PRODUCT USED FOR UNKNOWN INDICATION
     Dosage: UNK UNK, QWK
     Route: 065
  2. HUMIRA [Concomitant]
     Active Substance: ADALIMUMAB
     Dosage: UNK
  3. KEVZARA [Concomitant]
     Active Substance: SARILUMAB
     Dosage: UNK (BI-MONTHLY)

REACTIONS (4)
  - Drug effect decreased [Unknown]
  - Hypersensitivity [Recovering/Resolving]
  - Inflammation [Unknown]
  - Injection site pain [Unknown]
